FAERS Safety Report 5368602-6 (Version None)
Quarter: 2007Q2

REPORT INFORMATION
  Report Type: 
  Country: None (occurrence: None)
  Receive Date: 20070625
  Receipt Date: 20070612
  Transmission Date: 20071010
  Serious: Yes (Other)
  Sender: FDA-Public Use
  Company Number: US-JNJFOC-20070603223

PATIENT
  Sex: Female
  Weight: 53.6 kg

DRUGS (3)
  1. TOPAMAX [Suspect]
     Route: 048
  2. TOPAMAX [Suspect]
     Indication: DRUG USE FOR UNKNOWN INDICATION
     Dosage: TOOK 30 TABLETS
     Route: 048
  3. KEPPRA [Suspect]
     Indication: DRUG USE FOR UNKNOWN INDICATION
     Dosage: TOOK 14 TABLETS
     Route: 048

REACTIONS (6)
  - BLUNTED AFFECT [None]
  - CRYING [None]
  - EUPHORIC MOOD [None]
  - MULTIPLE DRUG OVERDOSE [None]
  - PARAESTHESIA [None]
  - PARANOIA [None]
